FAERS Safety Report 21553758 (Version 2)
Quarter: 2022Q4

REPORT INFORMATION
  Report Type: Spontaneous
  Country: PL (occurrence: PL)
  Receive Date: 20221104
  Receipt Date: 20221212
  Transmission Date: 20230113
  Serious: Yes (Death, Other)
  Sender: FDA-Public Use
  Company Number: PL-AMGEN-POLSP2021212227

PATIENT

DRUGS (4)
  1. BLINATUMOMAB [Suspect]
     Active Substance: BLINATUMOMAB
     Indication: B precursor type acute leukaemia
     Dosage: 5 MICROGRAM PER SQUARE METRE, QD
     Route: 040
  2. BLINATUMOMAB [Suspect]
     Active Substance: BLINATUMOMAB
     Dosage: 9 MICROGRAM PER SQUARE METRE, QD
     Route: 040
  3. BLINATUMOMAB [Suspect]
     Active Substance: BLINATUMOMAB
     Dosage: 15 MICROGRAM PER SQUARE METRE, QD
     Route: 040
  4. BLINATUMOMAB [Suspect]
     Active Substance: BLINATUMOMAB
     Dosage: 28 MICROGRAM PER SQUARE METRE, QD
     Route: 040

REACTIONS (22)
  - B precursor type acute leukaemia [Fatal]
  - AST/ALT ratio abnormal [Unknown]
  - Hypokalaemia [Unknown]
  - Neurotoxicity [Unknown]
  - Thrombocytopenia [Unknown]
  - Seizure [Unknown]
  - Capillary leak syndrome [Unknown]
  - T-lymphocyte count decreased [Recovering/Resolving]
  - Therapy non-responder [Unknown]
  - Tachycardia [Recovered/Resolved]
  - Anxiety [Unknown]
  - Nausea [Unknown]
  - Coordination abnormal [Unknown]
  - Pain in extremity [Unknown]
  - Headache [Unknown]
  - Hypertension [Unknown]
  - Speech disorder [Unknown]
  - Balance disorder [Unknown]
  - Tremor [Unknown]
  - Anaemia [Unknown]
  - Pyrexia [Unknown]
  - Cognitive disorder [Unknown]
